FAERS Safety Report 8398009-9 (Version None)
Quarter: 2012Q2

REPORT INFORMATION
  Report Type: 
  Country: None (occurrence: None)
  Receive Date: 20120531
  Receipt Date: 20120521
  Transmission Date: 20120825
  Serious: Yes (Other)
  Sender: FDA-Public Use
  Company Number: US-SANOFI-AVENTIS-2012SA028994

PATIENT
  Age: 64 Year
  Sex: Female
  Weight: 159.1 kg

DRUGS (4)
  1. HUMULIN R [Concomitant]
  2. PLAVIX [Suspect]
     Indication: ANTICOAGULANT THERAPY
     Route: 065
     Dates: start: 20050101, end: 20120101
  3. DRUG USED IN DIABETES [Concomitant]
  4. PLAVIX [Suspect]
     Indication: STENT PLACEMENT
     Route: 065
     Dates: start: 20050101, end: 20120101

REACTIONS (16)
  - EAR HAEMORRHAGE [None]
  - HYPOAESTHESIA [None]
  - GAIT DISTURBANCE [None]
  - RENAL DISORDER [None]
  - BLISTER [None]
  - EYE HAEMORRHAGE [None]
  - MOUTH HAEMORRHAGE [None]
  - RECTAL HAEMORRHAGE [None]
  - HAEMARTHROSIS [None]
  - MUSCLE SPASMS [None]
  - WEIGHT DECREASED [None]
  - CATARACT [None]
  - EPISTAXIS [None]
  - BLOOD CHOLESTEROL INCREASED [None]
  - BLINDNESS UNILATERAL [None]
  - JOINT SWELLING [None]
